FAERS Safety Report 7979769-5 (Version None)
Quarter: 2011Q4

REPORT INFORMATION
  Report Type: 
  Country: None (occurrence: None)
  Receive Date: 20111214
  Receipt Date: 20111206
  Transmission Date: 20120403
  Serious: Yes (Hospitalization)
  Sender: FDA-Public Use
  Company Number: JP-ROCHE-1008471

PATIENT
  Sex: Male
  Weight: 55.4 kg

DRUGS (12)
  1. TARCEVA [Suspect]
     Indication: NON-SMALL CELL LUNG CANCER
     Route: 048
     Dates: start: 20110913
  2. MINOCYCLINE HCL [Concomitant]
     Indication: RASH
     Dosage: DOSE: 100
     Route: 048
     Dates: start: 20111012
  3. AVASTIN [Suspect]
     Indication: NON-SMALL CELL LUNG CANCER
     Route: 042
     Dates: start: 20110913
  4. CANDESARTAN CILEXETIL [Suspect]
     Indication: HYPERTENSION
     Dosage: BEGINIG OF DOSAGE : TRIAL PREINITIATION, DOSE 6
     Route: 048
  5. FLIVAS [Concomitant]
     Indication: BENIGN PROSTATIC HYPERPLASIA
     Dosage: BEGINIG OF DOSAGE : TRIAL PREINITIATION DOSE:37.5
     Route: 048
  6. ALOSENN [Concomitant]
     Indication: CONSTIPATION
     Dosage: BEGINIG OF DOSAGE : TRIAL PREINITIATION DOSE: 0.5
  7. LOXOPROFEN [Concomitant]
     Indication: CHEST PAIN
     Dosage: BEGINIG OF DOSAGE : TRIAL PREINITIATION DOSE:60
     Route: 048
  8. ALMETA [Concomitant]
     Indication: RASH
     Dosage: SPREADING AND PROPERLY
     Route: 061
     Dates: start: 20110926
  9. RINDERON-VG [Concomitant]
     Indication: RASH
     Route: 061
     Dates: start: 20111012
  10. ISALON [Concomitant]
     Indication: GASTRITIS PROPHYLAXIS
     Dosage: BEGINIG OF DOSAGE : TRIAL PREINITIATION DOSE:100
     Route: 048
  11. XALATAN [Concomitant]
     Indication: GLAUCOMA
  12. AZUNOL [Concomitant]
     Indication: RASH
     Dosage: SPREADING AND PROPERLY
     Route: 061
     Dates: start: 20111019

REACTIONS (1)
  - ORTHOSTATIC HYPOTENSION [None]
